FAERS Safety Report 8624897-4 (Version None)
Quarter: 2012Q3

REPORT INFORMATION
  Report Type: 
  Country: None (occurrence: None)
  Receive Date: 20120827
  Receipt Date: 20110221
  Transmission Date: 20120928
  Serious: Yes (Hospitalization)
  Sender: FDA-Public Use
  Company Number: DK-AMGEN-DNKCT2010008460

PATIENT
  Age: 81 Year
  Sex: Male

DRUGS (8)
  1. ROMIPLOSTIM [Suspect]
     Indication: MYELODYSPLASTIC SYNDROME
     Dates: start: 20100125, end: 20101207
  2. LEVOTHYROXINE SODIUM [Concomitant]
     Indication: MYXOEDEMA
     Dosage: 100 MUG, QD
     Route: 048
  3. ROMIPLOSTIM [Suspect]
  4. CITALOPRAM HYDROBROMIDE [Concomitant]
     Dosage: 20 MG, UNK
     Route: 048
     Dates: start: 20100727
  5. IBUPROFEN                          /00109205/ [Concomitant]
     Indication: PAIN
     Dosage: 400 MG, UNK
     Route: 048
     Dates: start: 20101015
  6. PARACETAMOL WITH CODEINE PHOSPHATE [Concomitant]
     Indication: PAIN
     Dosage: 400 MG, UNK
     Route: 048
     Dates: start: 20100324
  7. MAGNESIUM OXIDE [Concomitant]
     Indication: CONSTIPATION
     Dosage: 1 G, QD
     Route: 048
     Dates: start: 20100115
  8. PANTOPRAZOL                        /01263202/ [Concomitant]
     Dosage: 20 MG, QD
     Route: 048
     Dates: start: 20100225

REACTIONS (1)
  - CEREBRAL ISCHAEMIA [None]
